FAERS Safety Report 10690980 (Version 1)
Quarter: 2015Q1

REPORT INFORMATION
  Report Type: Spontaneous
  Country: US (occurrence: None)
  Receive Date: 20150102
  Receipt Date: 20150102
  Transmission Date: 20150720
  Serious: Yes (Other)
  Sender: FDA-Public Use
  Company Number: CIO14084597

PATIENT

DRUGS (1)
  1. VICKS NYQUIL [Suspect]
     Active Substance: ACETAMINOPHEN\DEXTROMETHORPHAN HYDROBROMIDE\DOXYLAMINE SUCCINATE
     Dosage: UNKNOWN, ORAL
     Route: 048

REACTIONS (5)
  - Exposure via ingestion [None]
  - Malaise [None]
  - Accidental exposure to product [None]
  - Pneumonitis chemical [None]
  - Bronchopneumonia [None]
